FAERS Safety Report 8435766-7 (Version None)
Quarter: 2012Q2

REPORT INFORMATION
  Report Type: 
  Country: None (occurrence: None)
  Receive Date: 20120614
  Receipt Date: 20120611
  Transmission Date: 20120825
  Serious: No
  Sender: FDA-Public Use
  Company Number: US-TEVA-342720USA

PATIENT
  Sex: Female
  Weight: 52.664 kg

DRUGS (2)
  1. LUTERA [Concomitant]
     Indication: CONTRACEPTION
  2. PLAN B ONE-STEP [Suspect]
     Indication: POST COITAL CONTRACEPTION
     Dosage: 1.5 MILLIGRAM;
     Route: 048
     Dates: start: 20120510, end: 20120510

REACTIONS (2)
  - PELVIC PAIN [None]
  - ABDOMINAL PAIN LOWER [None]
